FAERS Safety Report 25421943 (Version 1)
Quarter: 2025Q2

REPORT INFORMATION
  Report Type: Spontaneous
  Country: CZ (occurrence: CZ)
  Receive Date: 20250611
  Receipt Date: 20250611
  Transmission Date: 20250717
  Serious: Yes (Other)
  Sender: BIOGEN
  Company Number: CZ-BIOGEN-2025BI01313437

PATIENT
  Age: 20 Year
  Sex: Male

DRUGS (1)
  1. SPINRAZA [Suspect]
     Active Substance: NUSINERSEN
     Indication: Spinal muscular atrophy
     Route: 050
     Dates: start: 202002

REACTIONS (3)
  - Status epilepticus [Unknown]
  - Respiratory arrest [Unknown]
  - Apallic syndrome [Unknown]

NARRATIVE: CASE EVENT DATE: 20250501
